FAERS Safety Report 19610827 (Version 2)
Quarter: 2021Q3

REPORT INFORMATION
  Report Type: Spontaneous
  Country: ES (occurrence: ES)
  Receive Date: 20210726
  Receipt Date: 20210816
  Transmission Date: 20211014
  Serious: Yes (Hospitalization, Other)
  Sender: FDA-Public Use
  Company Number: ES-MYLANLABS-2021M1044842

PATIENT
  Age: 76 Year
  Sex: Male

DRUGS (8)
  1. DOXORUBICIN [Suspect]
     Active Substance: DOXORUBICIN
     Indication: FOLLICULAR LYMPHOMA
     Dosage: UNK
     Route: 065
     Dates: start: 20190710
  2. VINCRISTINE [Suspect]
     Active Substance: VINCRISTINE
     Indication: FOLLICULAR LYMPHOMA
     Dosage: UNK
     Route: 065
     Dates: start: 20190710
  3. ATORVASTATIN                       /01326102/ [Concomitant]
     Active Substance: ATORVASTATIN
     Indication: PRODUCT USED FOR UNKNOWN INDICATION
     Dosage: UNK
  4. PREDNISONE. [Suspect]
     Active Substance: PREDNISONE
     Indication: FOLLICULAR LYMPHOMA
     Dosage: UNK
     Route: 065
     Dates: start: 20190710
  5. GAZYVARO [Suspect]
     Active Substance: OBINUTUZUMAB
     Indication: FOLLICULAR LYMPHOMA
     Dosage: 1000 MILLIGRAM IN 21 DAYS
     Route: 065
     Dates: start: 20190710
  6. CYCLOPHOSPHAMIDE. [Suspect]
     Active Substance: CYCLOPHOSPHAMIDE
     Indication: FOLLICULAR LYMPHOMA
     Dosage: UNK
     Route: 065
     Dates: start: 20190710
  7. SEPTRIN [Concomitant]
     Active Substance: SULFAMETHOXAZOLE\TRIMETHOPRIM
     Indication: PRODUCT USED FOR UNKNOWN INDICATION
     Dosage: UNK
  8. HIPERTENE [Concomitant]
     Indication: PRODUCT USED FOR UNKNOWN INDICATION
     Dosage: UNK

REACTIONS (1)
  - Neutropenia [Recovered/Resolved]

NARRATIVE: CASE EVENT DATE: 20191129
